FAERS Safety Report 13085908 (Version 1)
Quarter: 2017Q1

REPORT INFORMATION
  Report Type: Report from Study
  Country: US (occurrence: US)
  Receive Date: 20170104
  Receipt Date: 20170104
  Transmission Date: 20170428
  Serious: Yes (Death)
  Sender: FDA-Public Use
  Company Number: US-PFIZER INC-2016605057

PATIENT

DRUGS (3)
  1. PACLITAXEL. [Suspect]
     Active Substance: PACLITAXEL
     Dosage: 200 MG/M2, UNK
     Route: 042
  2. FLUOROURACIL. [Suspect]
     Active Substance: FLUOROURACIL
     Dosage: 225 MG/M2, 24 HR CONTINUOUS INFUSION, DAYS 1-42
     Route: 041
  3. CARBOPLATIN. [Suspect]
     Active Substance: CARBOPLATIN
     Dosage: AUC 6.0, CYCLIC
     Route: 042

REACTIONS (1)
  - Death [Fatal]
